FAERS Safety Report 21147402 (Version 1)
Quarter: 2022Q3

REPORT INFORMATION
  Report Type: Spontaneous
  Country: US (occurrence: None)
  Receive Date: 20220728
  Receipt Date: 20220728
  Transmission Date: 20221026
  Serious: Yes (Death)
  Sender: FDA-Public Use
  Company Number: None

PATIENT
  Age: 86 Year
  Sex: Female

DRUGS (1)
  1. RIVAROXABAN [Suspect]
     Active Substance: RIVAROXABAN

REACTIONS (4)
  - Epistaxis [None]
  - Mouth haemorrhage [None]
  - Aspiration [None]
  - Cardiac arrest [None]

NARRATIVE: CASE EVENT DATE: 20220219
